FAERS Safety Report 5388528-1 (Version None)
Quarter: 2007Q3

REPORT INFORMATION
  Report Type: 
  Country: None (occurrence: None)
  Receive Date: 20070716
  Receipt Date: 20070705
  Transmission Date: 20080115
  Serious: Yes (Other)
  Sender: FDA-Public Use
  Company Number: US-PFIZER INC-2007047127

PATIENT
  Sex: Female
  Weight: 59 kg

DRUGS (2)
  1. CHANTIX [Suspect]
     Indication: SMOKING CESSATION THERAPY
     Route: 048
     Dates: start: 20070603, end: 20070612
  2. ALL OTHER THERAPEUTIC PRODUCTS [Concomitant]
     Indication: MIGRAINE

REACTIONS (7)
  - ABNORMAL DREAMS [None]
  - DEPRESSION [None]
  - DRY MOUTH [None]
  - EXERCISE TOLERANCE DECREASED [None]
  - FATIGUE [None]
  - INCREASED APPETITE [None]
  - SOMNOLENCE [None]
